FAERS Safety Report 10440215 (Version 1)
Quarter: 2014Q3

REPORT INFORMATION
  Report Type: Spontaneous
  Country: US (occurrence: US)
  Receive Date: 20140908
  Receipt Date: 20140908
  Transmission Date: 20150326
  Serious: No
  Sender: FDA-Public Use
  Company Number: US-BRISTOL-MYERS SQUIBB COMPANY-20117180

PATIENT
  Age: 46 Year
  Sex: Female
  Weight: 75.28 kg

DRUGS (4)
  1. LATUDA [Concomitant]
     Active Substance: LURASIDONE HYDROCHLORIDE
     Dosage: 2NDJAN-8JAN14:40MG
     Dates: start: 20131205
  2. TOPAMAX [Concomitant]
     Active Substance: TOPIRAMATE
  3. LEVOTHYROXINE [Concomitant]
     Active Substance: LEVOTHYROXINE
  4. ABILIFY [Suspect]
     Active Substance: ARIPIPRAZOLE
     Indication: BIPOLAR I DISORDER
     Dates: start: 20140116

REACTIONS (1)
  - Panic reaction [Unknown]
